FAERS Safety Report 11364745 (Version 3)
Quarter: 2016Q4

REPORT INFORMATION
  Report Type: Spontaneous
  Country: NO (occurrence: NO)
  Receive Date: 20150811
  Receipt Date: 20161103
  Transmission Date: 20170206
  Serious: Yes (Disabling)
  Sender: FDA-Public Use
  Company Number: NO-009507513-1508NOR002546

PATIENT
  Age: 53 Year
  Sex: Male

DRUGS (2)
  1. FOSAMAX [Suspect]
     Active Substance: ALENDRONATE SODIUM
     Indication: OSTEONECROSIS
     Dosage: 70 MG, UNK
     Dates: start: 20140908, end: 201506
  2. CALCIGRAN FORTE [Concomitant]
     Dates: start: 20140908, end: 201506

REACTIONS (7)
  - Skin infection [Not Recovered/Not Resolved]
  - Calcinosis [Not Recovered/Not Resolved]
  - Coccydynia [Not Recovered/Not Resolved]
  - Fractured coccyx [Not Recovered/Not Resolved]
  - Skin ulcer [Not Recovered/Not Resolved]
  - Joint dislocation [Not Recovered/Not Resolved]
  - Back pain [Not Recovered/Not Resolved]

NARRATIVE: CASE EVENT DATE: 201504
